FAERS Safety Report 24319498 (Version 4)
Quarter: 2025Q3

REPORT INFORMATION
  Report Type: Spontaneous
  Country: JP (occurrence: JP)
  Receive Date: 20240914
  Receipt Date: 20250803
  Transmission Date: 20251020
  Serious: Yes (Hospitalization, Other)
  Sender: ALEXION PHARMACEUTICALS
  Company Number: JP-AstraZeneca-CH-00703826A

PATIENT
  Age: 72 Year
  Sex: Male
  Weight: 52 kg

DRUGS (18)
  1. ULTOMIRIS [Suspect]
     Active Substance: RAVULIZUMAB-CWVZ
     Indication: Neuromyelitis optica spectrum disorder
     Dates: start: 20240304, end: 20240304
  2. ULTOMIRIS [Suspect]
     Active Substance: RAVULIZUMAB-CWVZ
     Dosage: 3000 MILLIGRAM, Q8W
     Dates: start: 20240318, end: 20240513
  3. ULTOMIRIS [Suspect]
     Active Substance: RAVULIZUMAB-CWVZ
     Dates: start: 20241106, end: 20241106
  4. ULTOMIRIS [Suspect]
     Active Substance: RAVULIZUMAB-CWVZ
     Dosage: 3000 MILLIGRAM, Q8W
     Dates: start: 20241120
  5. PREDNISOLONE [Suspect]
     Active Substance: PREDNISOLONE
     Indication: Neuromyelitis optica spectrum disorder
     Dosage: 35 MILLIGRAM, QD
     Dates: start: 20240301, end: 20240304
  6. PREDNISOLONE [Suspect]
     Active Substance: PREDNISOLONE
     Dosage: 30 MILLIGRAM, QD
     Dates: start: 20240305, end: 20240307
  7. PREDNISOLONE [Suspect]
     Active Substance: PREDNISOLONE
     Dosage: 25 MILLIGRAM, QD
     Dates: start: 20240308, end: 20240311
  8. PREDNISOLONE [Suspect]
     Active Substance: PREDNISOLONE
     Dosage: 20 MILLIGRAM, QD
     Dates: start: 20240312, end: 20240314
  9. PREDNISOLONE [Suspect]
     Active Substance: PREDNISOLONE
     Dosage: 15 MILLIGRAM, QD
     Dates: start: 20240315, end: 20240318
  10. PREDNISOLONE [Suspect]
     Active Substance: PREDNISOLONE
     Dosage: 10 MILLIGRAM, QD
     Dates: start: 20240319, end: 20241025
  11. PREDNISOLONE [Suspect]
     Active Substance: PREDNISOLONE
     Dosage: 8 MILLIGRAM, QD
     Dates: start: 20241025
  12. AZATHIOPRINE [Suspect]
     Active Substance: AZATHIOPRINE
     Indication: Neuromyelitis optica spectrum disorder
     Dosage: 50 GRAM, QD
     Dates: start: 20240220
  13. AMLODIPINE [Concomitant]
     Active Substance: AMLODIPINE BESYLATE
     Indication: Aortic aneurysm
     Dosage: 5 MILLIGRAM, QD
     Dates: start: 20240205
  14. AMOXICILLIN [Concomitant]
     Active Substance: AMOXICILLIN
     Indication: Neuromyelitis optica spectrum disorder
     Dosage: 500 MILLIGRAM, TID
     Dates: start: 20240304, end: 20240314
  15. MENQUADFI [Concomitant]
     Active Substance: MENINGOCOCCAL (GROUPS A, C, Y, W) CONJUGATE VACCINE
     Indication: Neuromyelitis optica spectrum disorder
     Dates: start: 20240228, end: 20240228
  16. MENQUADFI [Concomitant]
     Active Substance: MENINGOCOCCAL (GROUPS A, C, Y, W) CONJUGATE VACCINE
     Dates: start: 20240430, end: 20240430
  17. LEVOTHYROXINE SODIUM [Concomitant]
     Active Substance: LEVOTHYROXINE SODIUM
     Indication: Neuromyelitis optica spectrum disorder
     Dosage: 75 MICROGRAM, QD
     Dates: start: 20240209
  18. CORTRIL [Concomitant]
     Active Substance: HYDROCORTISONE
     Indication: Neuromyelitis optica spectrum disorder
     Dosage: 15 MILLIGRAM, QD (10 MG IN MORNING AND 5 MG IN THE EVENING))
     Dates: start: 20240209

REACTIONS (1)
  - Pyelonephritis acute [Recovering/Resolving]

NARRATIVE: CASE EVENT DATE: 20240314
